FAERS Safety Report 5611247-0 (Version None)
Quarter: 2008Q1

REPORT INFORMATION
  Report Type: 
  Country: None (occurrence: None)
  Receive Date: 20080201
  Receipt Date: 20080125
  Transmission Date: 20080703
  Serious: Yes (Hospitalization, Other)
  Sender: FDA-Public Use
  Company Number: PHBS2007JP19799

PATIENT
  Age: 3 Year
  Sex: Female
  Weight: 9 kg

DRUGS (7)
  1. TEGRETOL [Suspect]
     Indication: EPILEPSY
     Dosage: 50 MG/DAY DIVIDED INTO 2 DOSES
     Route: 048
     Dates: start: 20070528
  2. TEGRETOL [Suspect]
     Dosage: 100 MG/DAY DIVIDED INTO 2 DOSES
     Route: 048
  3. TEGRETOL [Suspect]
     Dosage: 150 MG/DAY DIVIDED INTO 2 DOSES
     Route: 048
     Dates: start: 20070614, end: 20070627
  4. TEGRETOL [Suspect]
     Dosage: 180 MG/DAY DIVIDED INTO 2 DOSES
     Route: 048
     Dates: start: 20070628, end: 20070718
  5. TEGRETOL [Suspect]
     Dosage: 200 MG/DAY DIVIDED INTO 2 DOSES
     Route: 048
     Dates: start: 20070719, end: 20071230
  6. MELATONIN [Suspect]
     Indication: INITIAL INSOMNIA
     Dosage: 0.5 MG, UNK
     Route: 048
     Dates: start: 20070719
  7. TRICLORYL [Concomitant]
     Indication: INITIAL INSOMNIA
     Dosage: 5 ML/DAY
     Route: 048
     Dates: start: 20060629

REACTIONS (14)
  - BLOOD ALKALINE PHOSPHATASE INCREASED [None]
  - COLITIS ULCERATIVE [None]
  - CONSTIPATION [None]
  - CONVULSION [None]
  - DIARRHOEA [None]
  - DIARRHOEA HAEMORRHAGIC [None]
  - DRUG INEFFECTIVE [None]
  - HAEMATOCRIT DECREASED [None]
  - HAEMOGLOBIN DECREASED [None]
  - INTUSSUSCEPTION [None]
  - LACTOSE INTOLERANCE [None]
  - MUCOUS STOOLS [None]
  - PYREXIA [None]
  - RED BLOOD CELL COUNT DECREASED [None]
